FAERS Safety Report 13040713 (Version 6)
Quarter: 2019Q3

REPORT INFORMATION
  Report Type: Spontaneous
  Country: US (occurrence: US)
  Receive Date: 20161219
  Receipt Date: 20190903
  Transmission Date: 20191004
  Serious: Yes (Hospitalization, Other)
  Sender: FDA-Public Use
  Company Number: US-PFIZER INC-2016573884

PATIENT
  Age: 63 Year
  Sex: Male

DRUGS (5)
  1. BOSULIF [Suspect]
     Active Substance: BOSUTINIB MONOHYDRATE
     Indication: PLASMA CELL LEUKAEMIA
     Dosage: 500 MG, ONCE A DAY
     Route: 048
     Dates: start: 20161118, end: 201612
  2. BOSULIF [Suspect]
     Active Substance: BOSUTINIB MONOHYDRATE
     Dosage: 400 MG, DAILY
     Route: 048
     Dates: start: 20190430
  3. BOSULIF [Suspect]
     Active Substance: BOSUTINIB MONOHYDRATE
     Dosage: UNK, 3X/DAY
  4. BOSULIF [Suspect]
     Active Substance: BOSUTINIB MONOHYDRATE
     Dosage: 100 MG, 4X/DAY
     Route: 048
  5. BOSULIF [Suspect]
     Active Substance: BOSUTINIB MONOHYDRATE
     Dosage: 300 MG, DAILY
     Dates: start: 20190826

REACTIONS (9)
  - Cerebrovascular accident [Unknown]
  - Arthralgia [Unknown]
  - Off label use [Unknown]
  - Pain in extremity [Unknown]
  - Nausea [Unknown]
  - Abdominal discomfort [Unknown]
  - Exposure to communicable disease [Unknown]
  - Gastroenteritis viral [Unknown]
  - Product use in unapproved indication [Unknown]

NARRATIVE: CASE EVENT DATE: 201611
